FAERS Safety Report 20860713 (Version 2)
Quarter: 2022Q2

REPORT INFORMATION
  Report Type: Report from Study
  Country: GB (occurrence: GB)
  Receive Date: 20220523
  Receipt Date: 20220627
  Transmission Date: 20220720
  Serious: Yes (Hospitalization, Other)
  Sender: FDA-Public Use
  Company Number: IE-TAKEDA-2021TUS082508

PATIENT
  Age: 20 Year
  Sex: Male

DRUGS (3)
  1. VALSARTAN [Suspect]
     Active Substance: VALSARTAN
     Indication: Product used for unknown indication
     Dosage: UNK
     Route: 065
  2. REPLAGAL [Suspect]
     Active Substance: AGALSIDASE ALFA
     Indication: Fabry^s disease
     Dosage: 14 MILLIGRAM, Q2W(14 MILLIGRAM, Q2WEEKS)
     Route: 042
  3. REPLAGAL [Suspect]
     Active Substance: AGALSIDASE ALFA
     Dosage: 120 MILLIGRAM, Q2W(120 MILLIGRAM, Q2WEEKS)
     Route: 058

REACTIONS (11)
  - Cerebrovascular accident [Not Recovered/Not Resolved]
  - Thrombosis [Not Recovered/Not Resolved]
  - Paraesthesia [Unknown]
  - Dysgeusia [Unknown]
  - Poor venous access [Recovered/Resolved]
  - Anxiety [Unknown]
  - Blood pressure decreased [Recovered/Resolved]
  - Dizziness [Unknown]
  - Vertigo [Recovered/Resolved]
  - Therapy interrupted [Unknown]
  - Inappropriate schedule of product administration [Unknown]

NARRATIVE: CASE EVENT DATE: 20220114
